FAERS Safety Report 11071775 (Version 1)
Quarter: 2015Q2

REPORT INFORMATION
  Report Type: Spontaneous
  Country: US (occurrence: None)
  Receive Date: 20150427
  Receipt Date: 20150427
  Transmission Date: 20150821
  Serious: Yes (Disabling, Other)
  Sender: FDA-Public Use
  Company Number: None

PATIENT
  Age: 72 Year
  Sex: Male
  Weight: 89.81 kg

DRUGS (10)
  1. PROMETHAZINE WITH CODEINE [Suspect]
     Active Substance: CODEINE PHOSPHATE\PROMETHAZINE HYDROCHLORIDE
     Indication: COUGH
     Dosage: 4-6 HOURS AS NEEDED
     Route: 048
     Dates: start: 20150404
  2. ASPIRIN. [Concomitant]
     Active Substance: ASPIRIN
  3. VIT B [Concomitant]
     Active Substance: VITAMINS
  4. ALLOPURINOL. [Concomitant]
     Active Substance: ALLOPURINOL
  5. ALTACE [Concomitant]
     Active Substance: RAMIPRIL
  6. METOPROLOL SUCCINATE 25 MG [Suspect]
     Active Substance: METOPROLOL SUCCINATE
     Indication: POSTOPERATIVE CARE
     Route: 048
     Dates: start: 20140908, end: 20150423
  7. METOPROLOL SUCCINATE 25 MG [Suspect]
     Active Substance: METOPROLOL SUCCINATE
     Indication: CORONARY ARTERY BYPASS
     Route: 048
     Dates: start: 20140908, end: 20150423
  8. ATORVASTATIN CALCIUM. [Concomitant]
     Active Substance: ATORVASTATIN CALCIUM
  9. XALATAN [Concomitant]
     Active Substance: LATANOPROST
  10. UROCIT-K [Concomitant]
     Active Substance: POTASSIUM CITRATE

REACTIONS (9)
  - Insomnia [None]
  - Rash [None]
  - Fall [None]
  - Drug interaction [None]
  - Viral infection [None]
  - Loss of consciousness [None]
  - Cough [None]
  - Hypotension [None]
  - Foot fracture [None]

NARRATIVE: CASE EVENT DATE: 20150420
